FAERS Safety Report 6467352-2 (Version None)
Quarter: 2009Q4

REPORT INFORMATION
  Report Type: 
  Country: None (occurrence: None)
  Receive Date: 20091202
  Receipt Date: 20091123
  Transmission Date: 20100525
  Serious: Yes (Hospitalization)
  Sender: FDA-Public Use
  Company Number: US-NOVOPROD-301120

PATIENT
  Sex: Male

DRUGS (5)
  1. NOVOLOG [Suspect]
     Indication: TYPE 2 DIABETES MELLITUS
     Dosage: SLIDING SCALE
     Route: 058
     Dates: start: 20020101, end: 20090101
  2. LANTUS [Concomitant]
     Indication: TYPE 2 DIABETES MELLITUS
  3. XANAX [Concomitant]
     Indication: ANXIETY
     Dosage: UNK
  4. TRICOR [Concomitant]
     Indication: HYPERCHOLESTEROLAEMIA
     Dosage: UNK
  5. MULTI-VIT [Concomitant]
     Indication: VITAMIN SUPPLEMENTATION

REACTIONS (1)
  - MYOCARDIAL INFARCTION [None]
